FAERS Safety Report 16128344 (Version 1)
Quarter: 2019Q1

REPORT INFORMATION
  Report Type: Report from Study
  Country: US (occurrence: US)
  Receive Date: 20190328
  Receipt Date: 20190328
  Transmission Date: 20190418
  Serious: Yes (Other)
  Sender: FDA-Public Use
  Company Number: US-BIOGEN-2019BI00715021

PATIENT
  Age: 52 Year
  Sex: Female

DRUGS (2)
  1. TECFIDERA [Suspect]
     Active Substance: DIMETHYL FUMARATE
     Indication: MULTIPLE SCLEROSIS
     Route: 048
     Dates: start: 20190211
  2. TECFIDERA [Suspect]
     Active Substance: DIMETHYL FUMARATE
     Dosage: EVENING
     Route: 048
     Dates: start: 20190311

REACTIONS (11)
  - Prescribed underdose [Unknown]
  - Monoplegia [Unknown]
  - Product dose omission [Recovered/Resolved]
  - Memory impairment [Unknown]
  - Flushing [Unknown]
  - Nausea [Unknown]
  - Bursitis [Unknown]
  - Cognitive disorder [Unknown]
  - Confusional state [Unknown]
  - Menopause [Unknown]
  - Hepatic enzyme increased [Unknown]

NARRATIVE: CASE EVENT DATE: 20190311
